FAERS Safety Report 11620189 (Version 1)
Quarter: 2015Q4

REPORT INFORMATION
  Report Type: Spontaneous
  Country: US (occurrence: US)
  Receive Date: 20151012
  Receipt Date: 20151012
  Transmission Date: 20160304
  Serious: Yes (Other)
  Sender: FDA-Public Use
  Company Number: US-AKORN PHARMACEUTICALS-2015AKN00558

PATIENT
  Sex: Male

DRUGS (4)
  1. ZENATANE [Suspect]
     Active Substance: ISOTRETINOIN
  2. MYORISAN [Suspect]
     Active Substance: ISOTRETINOIN
  3. MYORISAN [Suspect]
     Active Substance: ISOTRETINOIN
  4. CLARAVIS [Suspect]
     Active Substance: ISOTRETINOIN

REACTIONS (2)
  - Depression [Unknown]
  - Anxiety [Unknown]
